FAERS Safety Report 4353808-5 (Version None)
Quarter: 2004Q2

REPORT INFORMATION
  Report Type: 
  Country: None (occurrence: None)
  Receive Date: 20040505
  Receipt Date: 20040505
  Transmission Date: 20050107
  Serious: Yes (Other)
  Sender: FDA-Public Use
  Company Number: None

PATIENT
  Age: 46 Year
  Sex: Female
  Weight: 81.6475 kg

DRUGS (1)
  1. REMERON [Suspect]
     Indication: MAJOR DEPRESSION
     Dosage: 30 MG HS
     Dates: start: 20040101

REACTIONS (4)
  - ANXIETY [None]
  - DRUG EFFECT DECREASED [None]
  - INSOMNIA [None]
  - PHARMACEUTICAL PRODUCT COMPLAINT [None]
